FAERS Safety Report 10100537 (Version 1)
Quarter: 2014Q2

REPORT INFORMATION
  Report Type: Spontaneous
  Country: US (occurrence: US)
  Receive Date: 20140423
  Receipt Date: 20140423
  Transmission Date: 20141212
  Serious: Yes (Hospitalization)
  Sender: FDA-Public Use
  Company Number: US-GLAXOSMITHKLINE-A1070507A

PATIENT
  Age: 75 Year
  Sex: Female

DRUGS (2)
  1. COREG [Suspect]
     Indication: CARDIAC DISORDER
     Dosage: 12.5MG UNKNOWN
     Route: 065
     Dates: start: 20060125
  2. UNSPECIFIED MEDICATIONS [Concomitant]

REACTIONS (2)
  - Investigation [Unknown]
  - Drug administration error [Unknown]
